FAERS Safety Report 4919427-4 (Version None)
Quarter: 2006Q1

REPORT INFORMATION
  Report Type: 
  Country: None (occurrence: None)
  Receive Date: 20060222
  Receipt Date: 20051020
  Transmission Date: 20060701
  Serious: Yes (Hospitalization)
  Sender: FDA-Public Use
  Company Number: US-MERCK-0510USA08373

PATIENT
  Age: 58 Year
  Sex: Female
  Weight: 105 kg

DRUGS (5)
  1. VIOXX [Suspect]
     Indication: ARTHRITIS
     Route: 048
     Dates: start: 20000101, end: 20040101
  2. TYLENOL [Concomitant]
     Route: 065
  3. ADVIL [Concomitant]
     Route: 065
  4. ALEVE [Concomitant]
     Route: 065
  5. MOTRIN [Concomitant]
     Route: 065

REACTIONS (1)
  - CEREBROVASCULAR ACCIDENT [None]
